FAERS Safety Report 6730604-2 (Version None)
Quarter: 2010Q2

REPORT INFORMATION
  Report Type: 
  Country: None (occurrence: None)
  Receive Date: 20100514
  Receipt Date: 20100506
  Transmission Date: 20101027
  Serious: Yes (Death, Hospitalization)
  Sender: FDA-Public Use
  Company Number: 99509

PATIENT
  Age: 8 Month
  Sex: Female

DRUGS (2)
  1. CARBOPLATIN [Suspect]
     Indication: CHEMOTHERAPY
     Dosage: 5.5 MG/KG;
  2. ETOPOSIDE [Suspect]
     Indication: CHEMOTHERAPY
     Dosage: 4.5 MG/KG

REACTIONS (5)
  - APLASIA [None]
  - DISSEMINATED INTRAVASCULAR COAGULATION [None]
  - FUNGAL INFECTION [None]
  - PANCYTOPENIA [None]
  - VENOOCCLUSIVE DISEASE [None]
